FAERS Safety Report 16596565 (Version 1)
Quarter: 2019Q3

REPORT INFORMATION
  Report Type: Report from Study
  Country: IT (occurrence: IT)
  Receive Date: 20190719
  Receipt Date: 20190719
  Transmission Date: 20191004
  Serious: Yes (Hospitalization)
  Sender: FDA-Public Use
  Company Number: IT-ROCHE-2358337

PATIENT
  Age: 30 Year
  Sex: Female

DRUGS (1)
  1. DIAZEPAM. [Suspect]
     Active Substance: DIAZEPAM
     Indication: PRODUCT USED FOR UNKNOWN INDICATION
     Route: 048
     Dates: start: 20190505, end: 20190505

REACTIONS (3)
  - Drug abuse [Unknown]
  - Movement disorder [Recovered/Resolved]
  - Bradyphrenia [Recovered/Resolved]

NARRATIVE: CASE EVENT DATE: 20190505
